FAERS Safety Report 12548999 (Version 1)
Quarter: 2016Q3

REPORT INFORMATION
  Report Type: Report from Study
  Country: JP (occurrence: JP)
  Receive Date: 20160712
  Receipt Date: 20160712
  Transmission Date: 20161109
  Serious: Yes (Hospitalization)
  Sender: FDA-Public Use
  Company Number: JP-SA-2016SA124268

PATIENT
  Age: 69 Year
  Sex: Male
  Weight: 52.6 kg

DRUGS (24)
  1. TAMSULOSIN HYDROCHLORIDE. [Concomitant]
     Active Substance: TAMSULOSIN HYDROCHLORIDE
     Dosage: ORALLY DISINTEGRATINGTABLETS
     Route: 048
     Dates: end: 20150323
  2. BETANIS [Concomitant]
     Active Substance: MIRABEGRON
     Dates: end: 20141026
  3. RINDERON VG [Concomitant]
     Active Substance: BETAMETHASONE VALERATE\GENTAMICIN SULFATE
     Dosage: LOTION
     Dates: start: 20150331
  4. NOVORAPID [Concomitant]
     Active Substance: INSULIN ASPART
     Dates: end: 20141022
  5. COLAC [Concomitant]
  6. TOVIAZ [Concomitant]
     Active Substance: FESOTERODINE FUMARATE
     Dates: start: 20150421
  7. LAXOBERON [Concomitant]
     Active Substance: SODIUM PICOSULFATE
     Dates: start: 20150518
  8. CILOSTAZOL. [Concomitant]
     Active Substance: CILOSTAZOL
     Dosage: OD TABLETS
     Route: 048
     Dates: end: 20141006
  9. HIRUDOID [Concomitant]
     Active Substance: GLYCOSAMINOGLYCANS
     Dosage: SOFT OINTMENT
     Dates: start: 20150331
  10. PLAVIX [Suspect]
     Active Substance: CLOPIDOGREL BISULFATE
     Indication: ARTERIAL OCCLUSIVE DISEASE
     Route: 065
     Dates: start: 20141007, end: 20151130
  11. MYSER [Concomitant]
     Active Substance: DIFLUPREDNATE
     Dates: start: 20150331
  12. URIEF [Concomitant]
     Active Substance: SILODOSIN
     Dates: start: 20150518
  13. PREDONINE [Concomitant]
     Active Substance: PREDNISOLONE\PREDNISOLONE ACETATE\PREDNISOLONE SODIUM SUCCINATE
  14. FOSAMAX [Concomitant]
     Active Substance: ALENDRONATE SODIUM
  15. TRESIBA [Concomitant]
     Active Substance: INSULIN DEGLUDEC
     Dates: start: 20141023
  16. PROPIVERINE HYDROCHLORIDE [Concomitant]
     Active Substance: PROPIVERINE HYDROCHLORIDE
     Dates: start: 20150126, end: 20150420
  17. INFLUENZA VACCINE [Concomitant]
     Active Substance: INFLUENZA VIRUS VACCINE
     Dates: start: 20151102, end: 20151102
  18. KIDAVATE [Concomitant]
     Dates: start: 20150331
  19. LIPITOR [Concomitant]
     Active Substance: ATORVASTATIN CALCIUM
  20. ALOSITOL [Concomitant]
     Active Substance: ALLOPURINOL
  21. ONGLYZA [Concomitant]
     Active Substance: SAXAGLIPTIN HYDROCHLORIDE
     Dates: start: 20141023
  22. REBAMIPIDE [Concomitant]
     Active Substance: REBAMIPIDE
     Dates: start: 20141216, end: 20150114
  23. KARY UNI [Concomitant]
     Active Substance: PIRENOXINE
     Dosage: OPTHALMIC SUSPENSION
     Dates: start: 20150323
  24. CILOSTAZOL. [Concomitant]
     Active Substance: CILOSTAZOL
     Dosage: ORALLY DISINTEGRATING TABLETS
     Route: 048
     Dates: start: 20151201

REACTIONS (6)
  - Osteoarthritis [Recovered/Resolved]
  - Decreased appetite [Recovered/Resolved]
  - Constipation [Recovered/Resolved]
  - Loss of consciousness [Recovered/Resolved]
  - Vertigo [Not Recovered/Not Resolved]
  - Periodontitis [Not Recovered/Not Resolved]

NARRATIVE: CASE EVENT DATE: 20141209
